FAERS Safety Report 9745099 (Version 1)
Quarter: 2013Q4

REPORT INFORMATION
  Report Type: Spontaneous
  Country: US (occurrence: US)
  Receive Date: 20131211
  Receipt Date: 20131211
  Transmission Date: 20140711
  Serious: Yes (Other)
  Sender: FDA-Public Use
  Company Number: US-SHIRE-ALL1-2013-08425

PATIENT
  Sex: Female

DRUGS (4)
  1. VYVANSE [Suspect]
     Indication: PRODUCT USED FOR UNKNOWN INDICATION
     Dosage: 60 MG, UNKNOWN
     Route: 048
     Dates: start: 2012
  2. VYVANSE [Suspect]
     Dosage: 30 MG, UNKNOWN
     Route: 048
     Dates: start: 201311, end: 2013
  3. VYVANSE [Suspect]
     Dosage: 40 MG, UNKNOWN
     Route: 048
     Dates: start: 2013
  4. ZOLOFT [Concomitant]
     Indication: PRODUCT USED FOR UNKNOWN INDICATION
     Dosage: UNK (SMALL DOSE), UNKNOWN
     Route: 065

REACTIONS (3)
  - Depression [Unknown]
  - Asthenia [Not Recovered/Not Resolved]
  - Drug ineffective [Not Recovered/Not Resolved]
